FAERS Safety Report 26073995 (Version 1)
Quarter: 2025Q4

REPORT INFORMATION
  Report Type: Spontaneous
  Country: RU (occurrence: RU)
  Receive Date: 20251121
  Receipt Date: 20251121
  Transmission Date: 20260117
  Serious: Yes (Other)
  Sender: BRISTOL-MYERS SQUIBB COMPANY
  Company Number: RU-BRISTOL-MYERS SQUIBB COMPANY-2025-156696

PATIENT
  Age: 77 Year
  Sex: Male

DRUGS (4)
  1. NIVOLUMAB [Suspect]
     Active Substance: NIVOLUMAB
     Indication: Malignant melanoma
     Dosage: THERAPY DURATION :4 COURSES
     Dates: start: 202407, end: 202409
  2. NIVOLUMAB [Suspect]
     Active Substance: NIVOLUMAB
     Dosage: THERAPY DURATION :1 COURSES
     Dates: start: 202410, end: 202410
  3. IPILIMUMAB [Suspect]
     Active Substance: IPILIMUMAB
     Indication: Malignant melanoma
     Dosage: THERAPY DURATION :4 COURSES
     Dates: start: 202407, end: 202409
  4. PREDNISOLONE [Concomitant]
     Active Substance: PREDNISOLONE
     Indication: Product used for unknown indication

REACTIONS (2)
  - Myelodysplastic syndrome [Unknown]
  - Immune-mediated adverse reaction [Unknown]
